FAERS Safety Report 7478669-7 (Version None)
Quarter: 2011Q2

REPORT INFORMATION
  Report Type: 
  Country: None (occurrence: None)
  Receive Date: 20110511
  Receipt Date: 20110511
  Transmission Date: 20111010
  Serious: Yes (Life-Threatening, Hospitalization, Disabling, Other)
  Sender: FDA-Public Use
  Company Number: None

PATIENT
  Age: 60 Year
  Sex: Male
  Weight: 70.7611 kg

DRUGS (2)
  1. INVEGA SUSTENNA [Suspect]
     Indication: AGGRESSION
     Dosage: 3 MG QHS ORAL 047
     Route: 048
     Dates: start: 20110307, end: 20110428
  2. INVEGA SUSTENNA [Suspect]
     Indication: TRAUMATIC BRAIN INJURY
     Dosage: 3 MG QHS ORAL 047
     Route: 048
     Dates: start: 20110307, end: 20110428

REACTIONS (9)
  - INFECTION [None]
  - INCONTINENCE [None]
  - DROOLING [None]
  - DYSPHAGIA [None]
  - TREMOR [None]
  - URINARY TRACT INFECTION [None]
  - PNEUMONIA ASPIRATION [None]
  - EYE INFECTION [None]
  - DIZZINESS [None]
